FAERS Safety Report 8252742-8 (Version None)
Quarter: 2012Q2

REPORT INFORMATION
  Report Type: 
  Country: None (occurrence: None)
  Receive Date: 20120402
  Receipt Date: 20120221
  Transmission Date: 20120825
  Serious: No
  Sender: FDA-Public Use
  Company Number: US-ABBOTT-11P-163-0882937-00

PATIENT
  Sex: Male

DRUGS (1)
  1. ANDROGEL [Suspect]
     Indication: BLOOD TESTOSTERONE DECREASED
     Dosage: 2 PUMPS EACH SHOULDER
     Dates: start: 20110830

REACTIONS (3)
  - ASTHENIA [None]
  - LIBIDO DECREASED [None]
  - GENERAL PHYSICAL HEALTH DETERIORATION [None]
